FAERS Safety Report 19019890 (Version 5)
Quarter: 2021Q2

REPORT INFORMATION
  Report Type: Spontaneous
  Country: US (occurrence: US)
  Receive Date: 20210317
  Receipt Date: 20210412
  Transmission Date: 20210717
  Serious: Yes (Hospitalization)
  Sender: FDA-Public Use
  Company Number: US-BIOGEN-2021BI00971190

PATIENT
  Age: 63 Year
  Sex: Female

DRUGS (1)
  1. TYSABRI [Suspect]
     Active Substance: NATALIZUMAB
     Indication: MULTIPLE SCLEROSIS
     Dosage: INFUSED OVER 1 HOUR
     Route: 042
     Dates: start: 20080827

REACTIONS (8)
  - COVID-19 [Unknown]
  - Multiple sclerosis [Not Recovered/Not Resolved]
  - Back pain [Unknown]
  - Memory impairment [Not Recovered/Not Resolved]
  - Aphasia [Unknown]
  - Confusional state [Unknown]
  - Bradyphrenia [Unknown]
  - Cognitive disorder [Not Recovered/Not Resolved]

NARRATIVE: CASE EVENT DATE: 202101
